FAERS Safety Report 21331146 (Version 1)
Quarter: 2022Q3

REPORT INFORMATION
  Report Type: Spontaneous
  Country: US (occurrence: None)
  Receive Date: 20220914
  Receipt Date: 20220914
  Transmission Date: 20221027
  Serious: No
  Sender: FDA-Public Use
  Company Number: US-ROCHE-3123929

PATIENT
  Sex: Male

DRUGS (1)
  1. ENSPRYNG [Suspect]
     Active Substance: SATRALIZUMAB-MWGE
     Indication: Optic neuritis
     Dosage: 120MG/ML
     Route: 058
     Dates: start: 202204

REACTIONS (1)
  - Injection site pain [Unknown]
